FAERS Safety Report 9106025 (Version 1)
Quarter: 2013Q1

REPORT INFORMATION
  Report Type: Spontaneous
  Country: FR (occurrence: FR)
  Receive Date: 20130220
  Receipt Date: 20130220
  Transmission Date: 20140127
  Serious: Yes (Hospitalization)
  Sender: FDA-Public Use
  Company Number: FR-PFIZER INC-2013060801

PATIENT
  Age: 64 Year
  Sex: Male

DRUGS (5)
  1. RAPAMUNE [Suspect]
     Indication: PROPHYLAXIS AGAINST TRANSPLANT REJECTION
     Dosage: UNK
     Dates: start: 20111217, end: 201204
  2. PREDNISONE [Concomitant]
     Dosage: 10 MG, DAILY
     Dates: start: 201106
  3. AMLODIPINE [Concomitant]
     Dosage: 5 MG, DAILY
     Dates: start: 201106
  4. BACTRIM [Concomitant]
     Dosage: 1 DF, 1X/DAY
  5. VALACICLOVIR [Concomitant]
     Dosage: 3 DF, 3X/DAY

REACTIONS (4)
  - Nephrotic syndrome [Recovered/Resolved with Sequelae]
  - Thrombophlebitis [Recovered/Resolved]
  - Thrombotic microangiopathy [Recovered/Resolved with Sequelae]
  - Colitis ischaemic [Recovered/Resolved]
